FAERS Safety Report 5079793-9 (Version None)
Quarter: 2006Q3

REPORT INFORMATION
  Report Type: 
  Country: None (occurrence: None)
  Receive Date: 20060815
  Receipt Date: 20060807
  Transmission Date: 20061208
  Serious: Yes (Other)
  Sender: FDA-Public Use
  Company Number: PHBS2006ZA11851

PATIENT
  Age: 16 Year
  Sex: Male

DRUGS (2)
  1. RITALIN-SR [Suspect]
  2. CIPRAMIL [Concomitant]

REACTIONS (1)
  - MYOCARDIAL INFARCTION [None]
